FAERS Safety Report 6979343-3 (Version None)
Quarter: 2010Q3

REPORT INFORMATION
  Report Type: 
  Country: None (occurrence: None)
  Receive Date: 20100913
  Receipt Date: 20100903
  Transmission Date: 20110219
  Serious: Yes (Other)
  Sender: FDA-Public Use
  Company Number: SE-BAYER-200943138GPV

PATIENT
  Age: 37 Year
  Sex: Female

DRUGS (3)
  1. MIRENA [Suspect]
     Indication: CONTRACEPTION
     Dosage: TOTAL DAILY DOSE: 20 ?G/D
     Route: 015
     Dates: start: 20080522, end: 20091123
  2. SUMATRIPTAN SUCCINATE [Concomitant]
     Indication: MIGRAINE
  3. POSTAFEN [Concomitant]
     Indication: VOMITING IN PREGNANCY
     Route: 048

REACTIONS (4)
  - POST PROCEDURAL HAEMORRHAGE [None]
  - PRE-ECLAMPSIA [None]
  - PREGNANCY WITH CONTRACEPTIVE DEVICE [None]
  - PREMATURE LABOUR [None]
